FAERS Safety Report 12980478 (Version 1)
Quarter: 2016Q4

REPORT INFORMATION
  Report Type: Spontaneous
  Country: DE (occurrence: DE)
  Receive Date: 20161128
  Receipt Date: 20161128
  Transmission Date: 20170207
  Serious: Yes (Death, Other)
  Sender: FDA-Public Use
  Company Number: DE-MYLANLABS-2016M1050955

PATIENT

DRUGS (2)
  1. ANALGESIC                          /00021207/ [Concomitant]
     Indication: ANALGESIC THERAPY
  2. ARIXTRA [Suspect]
     Active Substance: FONDAPARINUX SODIUM
     Indication: THROMBOPHLEBITIS SUPERFICIAL
     Dosage: 2.5 MG, QD
     Dates: start: 20160629, end: 20160715

REACTIONS (2)
  - Death [Fatal]
  - Pulmonary embolism [Unknown]

NARRATIVE: CASE EVENT DATE: 20160711
